FAERS Safety Report 16001291 (Version 1)
Quarter: 2019Q1

REPORT INFORMATION
  Report Type: Spontaneous
  Country: US (occurrence: US)
  Receive Date: 20190224
  Receipt Date: 20190224
  Transmission Date: 20190418
  Serious: Yes (Life-Threatening, Hospitalization, Other)
  Sender: FDA-Public Use
  Company Number: None

PATIENT
  Age: 72 Year
  Sex: Female
  Weight: 78.75 kg

DRUGS (9)
  1. CLONIDINE. [Concomitant]
     Active Substance: CLONIDINE
  2. BAYER LOW DOSE ASPIRIN [Concomitant]
  3. OMEGA 3-6-9 WITH FLAXSEED AND FISH OIL [Concomitant]
  4. LOSARTAN/HYDROCLOROTHIAZIDE [Suspect]
     Active Substance: HYDROCHLOROTHIAZIDE\LOSARTAN
     Indication: HYPERTENSION
     Dosage: ?          QUANTITY:1 TABLET(S);?
     Route: 048
     Dates: start: 20181105, end: 20181123
  5. FUROSEMIDE. [Concomitant]
     Active Substance: FUROSEMIDE
  6. VITAMIN B12 [Concomitant]
     Active Substance: CYANOCOBALAMIN
  7. LOSARTAN. [Concomitant]
     Active Substance: LOSARTAN
  8. TRESIBA FLEXTOUCH PEN [Concomitant]
  9. BYDUREON [Concomitant]
     Active Substance: EXENATIDE

REACTIONS (8)
  - Pain [None]
  - Blood pressure inadequately controlled [None]
  - Feeling hot [None]
  - Disorientation [None]
  - Product quality issue [None]
  - Swelling [None]
  - Restlessness [None]
  - Parosmia [None]

NARRATIVE: CASE EVENT DATE: 20181115
